FAERS Safety Report 8439524 (Version 4)
Quarter: 2013Q3

REPORT INFORMATION
  Report Type: Spontaneous
  Country: JP (occurrence: JP)
  Receive Date: 20120303
  Receipt Date: 20130713
  Transmission Date: 20140515
  Serious: Yes (Hospitalization)
  Sender: FDA-Public Use
  Company Number: JP-ABBOTT-12P-087-0910193-00

PATIENT
  Age: 65 Year
  Sex: Male

DRUGS (6)
  1. CLARITHROMYCIN [Suspect]
     Indication: HELICOBACTER INFECTION
     Dates: start: 20110510, end: 20110516
  2. CLARITHROMYCIN [Suspect]
     Indication: PROPHYLAXIS
  3. AMOXICILLIN [Suspect]
     Indication: HELICOBACTER INFECTION
     Dates: start: 20110510, end: 20110516
  4. AMOXICILLIN [Suspect]
     Indication: PROPHYLAXIS
     Dates: start: 20110510, end: 20110516
  5. RABEPRAZOLE [Suspect]
     Indication: HELICOBACTER INFECTION
     Dates: start: 20110510, end: 20110516
  6. RABEPRAZOLE [Suspect]
     Indication: PROPHYLAXIS

REACTIONS (1)
  - Pseudomembranous colitis [Recovered/Resolved]
